FAERS Safety Report 6618606-8 (Version None)
Quarter: 2010Q1

REPORT INFORMATION
  Report Type: 
  Country: None (occurrence: None)
  Receive Date: 20100302
  Receipt Date: 20091105
  Transmission Date: 20100710
  Serious: Yes (Disabling)
  Sender: FDA-Public Use
  Company Number: APP201000058

PATIENT
  Sex: Male

DRUGS (4)
  1. SENSORCAINE [Suspect]
     Indication: PROCEDURAL PAIN
     Dosage: CONTINUOUS VIA PUMP, , INTRA-ARTICULAR; CONTINUOUS VIA PUMP, INTRA-ARTICULAR
     Route: 014
     Dates: start: 20010222
  2. SENSORCAINE [Suspect]
     Indication: PROCEDURAL PAIN
     Dosage: CONTINUOUS VIA PUMP, , INTRA-ARTICULAR; CONTINUOUS VIA PUMP, INTRA-ARTICULAR
     Route: 014
     Dates: start: 20030102
  3. SGARLATO PAIN PUMP [Suspect]
     Indication: PROCEDURAL PAIN
     Dates: start: 20010222
  4. DJO PAIN PUMP [Suspect]
     Indication: PROCEDURAL PAIN
     Dates: start: 20030102

REACTIONS (7)
  - ASTHENIA [None]
  - CHONDROLYSIS [None]
  - CHONDROMALACIA [None]
  - JOINT CREPITATION [None]
  - JOINT RANGE OF MOTION DECREASED [None]
  - MUSCULOSKELETAL PAIN [None]
  - MUSCULOSKELETAL STIFFNESS [None]
